FAERS Safety Report 4997099-0 (Version None)
Quarter: 2006Q2

REPORT INFORMATION
  Report Type: 
  Country: None (occurrence: None)
  Receive Date: 20060509
  Receipt Date: 20060504
  Transmission Date: 20061013
  Serious: Yes (Death, Hospitalization)
  Sender: FDA-Public Use
  Company Number: 2006UW08717

PATIENT
  Age: 60 Year
  Sex: Male

DRUGS (5)
  1. CRESTOR [Suspect]
     Indication: HYPERCHOLESTEROLAEMIA
     Route: 048
  2. SELOZOK [Concomitant]
  3. ASPIRIN [Concomitant]
  4. STARFORM [Concomitant]
     Indication: DIABETES MELLITUS
  5. DIURETIC [Concomitant]

REACTIONS (6)
  - DEHYDRATION [None]
  - DIABETES MELLITUS [None]
  - JAUNDICE [None]
  - LIVER DISORDER [None]
  - RENAL FAILURE [None]
  - RHABDOMYOLYSIS [None]
